FAERS Safety Report 4852458-1 (Version None)
Quarter: 2005Q4

REPORT INFORMATION
  Report Type: 
  Country: None (occurrence: None)
  Receive Date: 20051213
  Receipt Date: 20051202
  Transmission Date: 20060501
  Serious: Yes (Hospitalization)
  Sender: FDA-Public Use
  Company Number: PHEH2005US13144

PATIENT
  Age: 49 Year
  Sex: Male
  Weight: 81.632 kg

DRUGS (1)
  1. ZELNORM [Suspect]
     Indication: IRRITABLE BOWEL SYNDROME
     Dosage: 6 MG, BID
     Route: 048
     Dates: start: 20030101, end: 20051003

REACTIONS (6)
  - ABDOMINAL PAIN [None]
  - CLOSTRIDIUM COLITIS [None]
  - COLITIS ISCHAEMIC [None]
  - INTESTINAL ULCER [None]
  - MUCOSAL INFLAMMATION [None]
  - OEDEMA MUCOSAL [None]
